FAERS Safety Report 9329717 (Version 1)
Quarter: 2013Q2

REPORT INFORMATION
  Report Type: Spontaneous
  Country: US (occurrence: US)
  Receive Date: 20130604
  Receipt Date: 20130604
  Transmission Date: 20140414
  Serious: Yes (Hospitalization)
  Sender: FDA-Public Use
  Company Number: US-SANOFI-AVENTIS-2013SA034583

PATIENT
  Age: 74 Year
  Sex: Male
  Weight: 95.25 kg

DRUGS (2)
  1. SOLOSTAR [Suspect]
     Indication: TYPE 2 DIABETES MELLITUS
     Dosage: TAKING SINCE 3 YEARS.
  2. LANTUS SOLOSTAR [Suspect]
     Indication: TYPE 2 DIABETES MELLITUS
     Dosage: DRUG STARTED FROM 3 YEARS AGO. DOSE:17 UNIT(S)
     Route: 051

REACTIONS (2)
  - Hypoglycaemia [Unknown]
  - Injection site haemorrhage [Unknown]
